FAERS Safety Report 24192093 (Version 1)
Quarter: 2024Q3

REPORT INFORMATION
  Report Type: Spontaneous
  Country: BR (occurrence: BR)
  Receive Date: 20240809
  Receipt Date: 20240809
  Transmission Date: 20241016
  Serious: Yes (Hospitalization, Other)
  Sender: CHEPLAPHARM
  Company Number: BR-CHEPLA-2024008714

PATIENT
  Age: 46 Year
  Sex: Male

DRUGS (2)
  1. CAPECITABINE [Suspect]
     Active Substance: CAPECITABINE
     Indication: Gastric cancer
     Dosage: 500 MG X 6 PER 24 HOURS. 6 TABLETS PER DAY (3 IN THE MORNING AND 3 AT NIGHT), FOR 14 DAYS IN A 7-...
     Route: 048
     Dates: start: 20240530, end: 20240616
  2. CAPECITABINE [Suspect]
     Active Substance: CAPECITABINE
     Indication: Gastric cancer
     Dosage: 500 MG X 7 PER 24 HOURS . DOSAGE WAS ADJUSTED TO 3 TABLETS IN THE MORNING AND 4 AT NIGHT
     Dates: start: 20240617

REACTIONS (4)
  - Vision blurred [Unknown]
  - Gastric cancer recurrent [Unknown]
  - Diarrhoea [Unknown]
  - Dizziness [Unknown]

NARRATIVE: CASE EVENT DATE: 20240601
